FAERS Safety Report 4666755-6 (Version None)
Quarter: 2005Q2

REPORT INFORMATION
  Report Type: 
  Country: None (occurrence: None)
  Receive Date: 20050429
  Receipt Date: 20050422
  Transmission Date: 20051028
  Serious: Yes (Death, Other)
  Sender: FDA-Public Use
  Company Number: HQWYE256025APR05

PATIENT
  Age: 77 Year
  Sex: Male

DRUGS (11)
  1. NEUMEGA (OPRELVEKIN, INJECTION) [Suspect]
     Indication: THROMBOCYTOPENIA
     Dosage: 3.8 MG DAILY, GIVEN X2, SUBCUTANEOUS
     Route: 058
     Dates: start: 20050413, end: 20050414
  2. TAXOTERE [Concomitant]
  3. THALIDOMIDE (THALIDOMIDE) [Concomitant]
  4. PREDNISONE [Concomitant]
  5. ZOMETA [Concomitant]
  6. REMERON [Concomitant]
  7. TRAMADOL HCL [Concomitant]
  8. K-DUR 10 [Concomitant]
  9. LANOXIN [Concomitant]
  10. LISINOPRIL [Concomitant]
  11. ASPIRIN [Concomitant]

REACTIONS (4)
  - CARDIAC ARREST [None]
  - DEHYDRATION [None]
  - FEELING ABNORMAL [None]
  - NAUSEA [None]
